FAERS Safety Report 25255175 (Version 1)
Quarter: 2025Q2

REPORT INFORMATION
  Report Type: Report from Study
  Country: US (occurrence: US)
  Receive Date: 20250430
  Receipt Date: 20250430
  Transmission Date: 20250717
  Serious: Yes (Congenital Anomaly, Other)
  Sender: NOVARTIS
  Company Number: US-002147023-NVSC2025US067314

PATIENT
  Age: 68 Year
  Sex: Female
  Weight: 54.43 kg

DRUGS (1)
  1. LEQVIO [Suspect]
     Active Substance: INCLISIRAN SODIUM
     Indication: Product used for unknown indication
     Route: 030
     Dates: start: 20250227, end: 20250227

REACTIONS (7)
  - Cystitis interstitial [Not Recovered/Not Resolved]
  - Arthralgia [Not Recovered/Not Resolved]
  - Musculoskeletal discomfort [Not Recovered/Not Resolved]
  - Insomnia [Not Recovered/Not Resolved]
  - Feeling abnormal [Unknown]
  - Dysuria [Unknown]
  - Urine odour abnormal [Unknown]

NARRATIVE: CASE EVENT DATE: 20250227
